FAERS Safety Report 7788342-3 (Version None)
Quarter: 2011Q3

REPORT INFORMATION
  Report Type: 
  Country: None (occurrence: None)
  Receive Date: 20110930
  Receipt Date: 20110922
  Transmission Date: 20111222
  Serious: Yes (Other)
  Sender: FDA-Public Use
  Company Number: US-AMGEN-USASP2010009714

PATIENT
  Age: 82 Year
  Sex: Female
  Weight: 39 kg

DRUGS (7)
  1. PROLIA [Suspect]
     Indication: OSTEOPOROSIS POSTMENOPAUSAL
     Dosage: 60 MG, Q6MO
     Dates: start: 20100924
  2. FOSAMAX [Concomitant]
  3. TRAMADOL [Concomitant]
     Dosage: 1 MG, UNK
  4. MAGNESIUM [Concomitant]
     Dosage: UNK
  5. TRAMADOL [Concomitant]
  6. IBUPROFEN [Concomitant]
     Dosage: UNK
  7. THYROID THERAPY [Concomitant]

REACTIONS (12)
  - MUSCLE TWITCHING [None]
  - UPPER RESPIRATORY TRACT INFECTION [None]
  - MYALGIA [None]
  - MUSCLE SPASMS [None]
  - PAIN IN EXTREMITY [None]
  - BACK PAIN [None]
  - PNEUMONIA [None]
  - CYSTITIS [None]
  - HYPOAESTHESIA [None]
  - BONE DENSITY DECREASED [None]
  - ANAEMIA [None]
  - PARAESTHESIA [None]
